FAERS Safety Report 8163122-8 (Version None)
Quarter: 2012Q1

REPORT INFORMATION
  Report Type: 
  Country: None (occurrence: None)
  Receive Date: 20120224
  Receipt Date: 20120217
  Transmission Date: 20120608
  Serious: No
  Sender: FDA-Public Use
  Company Number: US-BAYER-2012-016705

PATIENT
  Sex: Female

DRUGS (1)
  1. CIPRO [Suspect]
     Dosage: UNK
     Route: 048
     Dates: start: 20120205, end: 20120215

REACTIONS (2)
  - ABDOMINAL DISCOMFORT [None]
  - BURNING SENSATION [None]
